FAERS Safety Report 5297952-7 (Version None)
Quarter: 2007Q2

REPORT INFORMATION
  Report Type: 
  Country: None (occurrence: None)
  Receive Date: 20070416
  Receipt Date: 20070405
  Transmission Date: 20071010
  Serious: Yes (Other)
  Sender: FDA-Public Use
  Company Number: AT-GLAXOSMITHKLINE-B0466232A

PATIENT
  Sex: Female

DRUGS (1)
  1. ZYBAN [Suspect]

REACTIONS (6)
  - CONVULSION [None]
  - EYE PAIN [None]
  - MALAISE [None]
  - PAIN [None]
  - PSYCHOMOTOR HYPERACTIVITY [None]
  - VERTIGO [None]
